FAERS Safety Report 24589992 (Version 2)
Quarter: 2024Q4

REPORT INFORMATION
  Report Type: Spontaneous
  Country: CH (occurrence: CH)
  Receive Date: 20241107
  Receipt Date: 20241128
  Transmission Date: 20250115
  Serious: Yes (Life-Threatening, Hospitalization)
  Sender: TEVA
  Company Number: CH-TEVA-VS-3260321

PATIENT
  Age: 62 Year
  Sex: Female

DRUGS (4)
  1. CARBOPLATIN [Suspect]
     Active Substance: CARBOPLATIN
     Indication: Triple negative breast cancer
     Route: 065
  2. MEROPENEM [Suspect]
     Active Substance: MEROPENEM
     Indication: Gas gangrene
     Route: 042
  3. CLINDAMYCIN [Suspect]
     Active Substance: CLINDAMYCIN
     Indication: Gas gangrene
     Route: 065
  4. PACLITAXEL [Suspect]
     Active Substance: PACLITAXEL
     Indication: Triple negative breast cancer
     Route: 065

REACTIONS (5)
  - Febrile neutropenia [Recovering/Resolving]
  - Drug ineffective [Unknown]
  - Haemodynamic instability [Unknown]
  - Wound dehiscence [Unknown]
  - Gas gangrene [Recovering/Resolving]
